FAERS Safety Report 17174279 (Version 5)
Quarter: 2021Q1

REPORT INFORMATION
  Report Type: Spontaneous
  Country: BR (occurrence: BR)
  Receive Date: 20191219
  Receipt Date: 20210305
  Transmission Date: 20210419
  Serious: Yes (Life-Threatening, Hospitalization)
  Sender: FDA-Public Use
  Company Number: BR-TORRENT-00005193

PATIENT
  Age: 12 Year
  Sex: Male
  Weight: 52 kg

DRUGS (5)
  1. AMITRIPTYLINE [Concomitant]
     Active Substance: AMITRIPTYLINE
     Indication: AFFECTIVE DISORDER
     Dosage: ONE TABLET AT NIGHT
     Route: 048
     Dates: start: 201907
  2. DEPAKOTE [Concomitant]
     Active Substance: DIVALPROEX SODIUM
     Indication: AFFECTIVE DISORDER
     Dosage: ONE TABLET DAILY
     Route: 048
     Dates: start: 2019, end: 20191129
  3. RISPERIDONE. [Suspect]
     Active Substance: RISPERIDONE
     Indication: IMPULSE-CONTROL DISORDER
     Dosage: ONE TABLET AT NIGHT
     Route: 048
  4. LAMITOR CD [Suspect]
     Active Substance: LAMOTRIGINE
     Indication: AFFECTIVE DISORDER
     Dosage: ONE TABLET DAILY
     Route: 048
     Dates: start: 20191112, end: 20191120
  5. LAMITOR CD [Suspect]
     Active Substance: LAMOTRIGINE
     Indication: AFFECTIVE DISORDER
     Dosage: 2 TABLETS DAILY (ONE IN THE MORNING AND ONE AT NIGHT  200MG DAILY)
     Route: 048
     Dates: start: 20191120, end: 20191127

REACTIONS (4)
  - Skin exfoliation [Recovering/Resolving]
  - Infectious mononucleosis [Recovering/Resolving]
  - Toxic epidermal necrolysis [Recovering/Resolving]
  - Stevens-Johnson syndrome [Recovering/Resolving]

NARRATIVE: CASE EVENT DATE: 201911
